FAERS Safety Report 9182395 (Version 1)
Quarter: 2013Q1

REPORT INFORMATION
  Report Type: Spontaneous
  Country: US (occurrence: None)
  Receive Date: 20130321
  Receipt Date: 20130321
  Transmission Date: 20140127
  Serious: Yes (Hospitalization)
  Sender: FDA-Public Use
  Company Number: None

PATIENT
  Age: 69 Year
  Sex: Female
  Weight: 94.8 kg

DRUGS (1)
  1. BUMETANIDE [Suspect]
     Indication: OEDEMA
     Dates: start: 20130305

REACTIONS (3)
  - Dizziness [None]
  - Fall [None]
  - Head injury [None]
